FAERS Safety Report 6910314-9 (Version None)
Quarter: 2010Q3

REPORT INFORMATION
  Report Type: 
  Country: None (occurrence: None)
  Receive Date: 20100806
  Receipt Date: 20100726
  Transmission Date: 20110219
  Serious: Yes (Death, Other)
  Sender: FDA-Public Use
  Company Number: JP-PFIZER INC-2010080476

PATIENT
  Age: 79 Year
  Sex: Female
  Weight: 43 kg

DRUGS (4)
  1. ZYVOX [Suspect]
     Indication: PNEUMONIA
     Dosage: 600 MG, 2X/DAY
     Route: 041
     Dates: start: 20100605, end: 20100701
  2. MAXIPIME [Suspect]
     Indication: PNEUMONIA
     Dosage: 1 G, 4X/DAY
     Route: 041
  3. VANCOMYCIN [Concomitant]
     Indication: PNEUMONIA
     Dosage: 0.25 G, 1X/DAY
     Route: 041
     Dates: start: 20100603, end: 20100621
  4. ISEPACIN [Concomitant]
     Indication: PNEUMONIA
     Dosage: UNK
     Route: 041
     Dates: start: 20100610, end: 20100621

REACTIONS (2)
  - LUNG DISORDER [None]
  - PLATELET COUNT DECREASED [None]
